FAERS Safety Report 10926909 (Version 2)
Quarter: 2015Q1

REPORT INFORMATION
  Report Type: Spontaneous
  Country: FR (occurrence: FR)
  Receive Date: 20150318
  Receipt Date: 20150325
  Transmission Date: 20150721
  Serious: Yes (Hospitalization, Other)
  Sender: FDA-Public Use
  Company Number: FR-PFIZER INC-2015093335

PATIENT
  Age: 67 Year
  Sex: Male

DRUGS (12)
  1. METOCLOPRAMIDE. [Concomitant]
     Active Substance: METOCLOPRAMIDE
  2. MEDROL [Suspect]
     Active Substance: METHYLPREDNISOLONE
     Indication: GLIOBLASTOMA MULTIFORME
     Dosage: 200 MG, DAILY
     Route: 048
     Dates: start: 20140701
  3. TEMOZOLOMIDE. [Suspect]
     Active Substance: TEMOZOLOMIDE
     Dosage: UNK
     Route: 048
     Dates: start: 20141007, end: 20141009
  4. NEFOPAM [Concomitant]
     Active Substance: NEFOPAM
     Dosage: 20 MG, UNK
  5. MOVICOL [Concomitant]
     Active Substance: POLYETHYLENE GLYCOL 3350\POTASSIUM CHLORIDE\SODIUM BICARBONATE\SODIUM CHLORIDE
  6. ZOPHREN [Concomitant]
     Active Substance: ONDANSETRON
     Dosage: 8 MG, UNK
  7. HUMALOG [Concomitant]
     Active Substance: INSULIN LISPRO
  8. DIFFU K [Concomitant]
     Active Substance: POTASSIUM CHLORIDE
     Dosage: 600 MG, UNK
  9. NOVORAPID [Concomitant]
     Active Substance: INSULIN ASPART
  10. ISOPHANE INSULIN [Concomitant]
     Active Substance: INSULIN NOS
  11. INEXIUM /01479302/ [Concomitant]
     Active Substance: ESOMEPRAZOLE MAGNESIUM
     Dosage: 40 MG, UNK
  12. RISPERDAL [Concomitant]
     Active Substance: RISPERIDONE
     Dosage: 3 MG, DAILY

REACTIONS (4)
  - Opportunistic infection [Recovering/Resolving]
  - Immunosuppression [Unknown]
  - Pneumocystis jirovecii pneumonia [Recovering/Resolving]
  - Lung disorder [Recovering/Resolving]

NARRATIVE: CASE EVENT DATE: 20141009
